FAERS Safety Report 12125098 (Version 1)
Quarter: 2016Q1

REPORT INFORMATION
  Report Type: Spontaneous
  Country: US (occurrence: None)
  Receive Date: 20160226
  Receipt Date: 20160226
  Transmission Date: 20160526
  Serious: Yes (Hospitalization)
  Sender: FDA-Public Use
  Company Number: None

PATIENT
  Age: 33 Year
  Sex: Male

DRUGS (13)
  1. HUMALOG [Concomitant]
     Active Substance: INSULIN LISPRO
  2. TOBI PODHALER [Suspect]
     Active Substance: TOBRAMYCIN
     Indication: CYSTIC FIBROSIS
     Dosage: 4 CAPS BID QOWM INHALED
  3. METOCLOPRAM [Concomitant]
     Active Substance: METOCLOPRAMIDE
  4. PULMOZYME [Concomitant]
     Active Substance: DORNASE ALFA
  5. XOPENIEX [Concomitant]
  6. PULMOZYME [Suspect]
     Active Substance: DORNASE ALFA
     Indication: CYSTIC FIBROSIS
     Dosage: ONE VIAL BID INHALED
     Dates: start: 201406
  7. OMPERAZOLE [Concomitant]
     Active Substance: OMEPRAZOLE
  8. HYPER-SAL [Concomitant]
  9. PROAIR HFA [Concomitant]
     Active Substance: ALBUTEROL SULFATE
  10. ZITHROMAX [Concomitant]
     Active Substance: AZITHROMYCIN DIHYDRATE
  11. TOBI [Concomitant]
     Active Substance: TOBRAMYCIN
  12. ADVAIR DISCU [Concomitant]
  13. ULTRASE MT20 [Concomitant]

REACTIONS (1)
  - Hospitalisation [None]

NARRATIVE: CASE EVENT DATE: 201602
